FAERS Safety Report 12763219 (Version 1)
Quarter: 2016Q3

REPORT INFORMATION
  Report Type: Spontaneous
  Country: KE (occurrence: KE)
  Receive Date: 20160920
  Receipt Date: 20160920
  Transmission Date: 20161109
  Serious: Yes (Other)
  Sender: FDA-Public Use
  Company Number: PHHY2016KE126535

PATIENT
  Age: 9 Year
  Sex: Male
  Weight: 34 kg

DRUGS (1)
  1. CURAM [Suspect]
     Active Substance: AMOXICILLIN\CLAVULANATE POTASSIUM
     Indication: PHARYNGITIS
     Dosage: 626 MG, BID
     Route: 065

REACTIONS (4)
  - Pyrexia [Unknown]
  - Restlessness [Unknown]
  - Rash generalised [Unknown]
  - Lip swelling [Unknown]
